FAERS Safety Report 14112939 (Version 1)
Quarter: 2017Q4

REPORT INFORMATION
  Report Type: Spontaneous
  Country: US (occurrence: US)
  Receive Date: 20171022
  Receipt Date: 20171022
  Transmission Date: 20180321
  Serious: No
  Sender: FDA-Public Use
  Company Number: US-BIOGEN-2017BI00473968

PATIENT
  Sex: Female

DRUGS (1)
  1. TECFIDERA [Suspect]
     Active Substance: DIMETHYL FUMARATE
     Indication: MULTIPLE SCLEROSIS
     Route: 065
     Dates: start: 20170807

REACTIONS (5)
  - Paraesthesia [Unknown]
  - Joint swelling [Recovered/Resolved]
  - Diarrhoea [Unknown]
  - Arthralgia [Unknown]
  - Hot flush [Unknown]
